FAERS Safety Report 20230041 (Version 3)
Quarter: 2021Q4

REPORT INFORMATION
  Report Type: Spontaneous
  Country: US (occurrence: US)
  Receive Date: 20211226
  Receipt Date: 20211231
  Transmission Date: 20220303
  Serious: No
  Sender: FDA-Public Use
  Company Number: US-SANOFI-00900109

PATIENT
  Age: 63 Year
  Sex: Male

DRUGS (2)
  1. DUPIXENT [Suspect]
     Active Substance: DUPILUMAB
     Indication: Asthma
     Dosage: 300 MG, 1X
     Dates: start: 20211208
  2. NUCALA [Concomitant]
     Active Substance: MEPOLIZUMAB

REACTIONS (4)
  - Incorrect dose administered [Unknown]
  - Device use error [Unknown]
  - Product use issue [Unknown]
  - Device leakage [Unknown]

NARRATIVE: CASE EVENT DATE: 20211208
